FAERS Safety Report 17344223 (Version 1)
Quarter: 2020Q1

REPORT INFORMATION
  Report Type: Spontaneous
  Country: US (occurrence: US)
  Receive Date: 20200129
  Receipt Date: 20200129
  Transmission Date: 20200409
  Serious: No
  Sender: FDA-Public Use
  Company Number: US-ALLERGAN-1928549US

PATIENT
  Sex: Female

DRUGS (12)
  1. KLONOPIN [Suspect]
     Active Substance: CLONAZEPAM
     Indication: PRODUCT USED FOR UNKNOWN INDICATION
  2. AMBIEN [Suspect]
     Active Substance: ZOLPIDEM TARTRATE
     Indication: PRODUCT USED FOR UNKNOWN INDICATION
  3. CYMBALTA [Suspect]
     Active Substance: DULOXETINE HYDROCHLORIDE
     Indication: PRODUCT USED FOR UNKNOWN INDICATION
  4. ANTHRAX VACCINE ADSORBED NOS [Suspect]
     Active Substance: BACILLUS ANTHRACIS STRAIN V770-NP1-R ANTIGEN
     Indication: PRODUCT USED FOR UNKNOWN INDICATION
  5. SCOPOLAMINE [Suspect]
     Active Substance: SCOPOLAMINE
     Indication: PRODUCT USED FOR UNKNOWN INDICATION
     Dosage: UNK
  6. PROPRANOLOL [Suspect]
     Active Substance: PROPRANOLOL HYDROCHLORIDE
     Indication: PRODUCT USED FOR UNKNOWN INDICATION
  7. AMITRIPTYLINE [Suspect]
     Active Substance: AMITRIPTYLINE
     Indication: PRODUCT USED FOR UNKNOWN INDICATION
  8. FLEXERIL [Suspect]
     Active Substance: CYCLOBENZAPRINE HYDROCHLORIDE
     Indication: PRODUCT USED FOR UNKNOWN INDICATION
  9. MYXITIN [Suspect]
     Active Substance: COLISTIMETHATE SODIUM
     Indication: PRODUCT USED FOR UNKNOWN INDICATION
  10. OXYCODONE [Suspect]
     Active Substance: OXYCODONE
     Indication: PRODUCT USED FOR UNKNOWN INDICATION
  11. BOTOX [Suspect]
     Active Substance: ONABOTULINUMTOXINA
     Indication: PRODUCT USED FOR UNKNOWN INDICATION
     Dosage: UNK, SINGLE
  12. TRAZODONE [Suspect]
     Active Substance: TRAZODONE HYDROCHLORIDE
     Indication: PRODUCT USED FOR UNKNOWN INDICATION

REACTIONS (15)
  - Dementia [Not Recovered/Not Resolved]
  - Skin discolouration [Unknown]
  - Visual impairment [Unknown]
  - Hypoacusis [Unknown]
  - Fibromyalgia [Unknown]
  - Mental disorder [Unknown]
  - Vertigo [Unknown]
  - Post-traumatic stress disorder [Unknown]
  - Panic attack [Unknown]
  - Near death experience [Unknown]
  - Intervertebral disc degeneration [Unknown]
  - Panic disorder [Unknown]
  - Chloasma [Unknown]
  - Staphylococcal infection [Unknown]
  - Migraine [Unknown]
